FAERS Safety Report 23864344 (Version 1)
Quarter: 2024Q2

REPORT INFORMATION
  Report Type: Spontaneous
  Country: JP (occurrence: JP)
  Receive Date: 20240516
  Receipt Date: 20240516
  Transmission Date: 20240715
  Serious: Yes (Death, Other)
  Sender: FDA-Public Use
  Company Number: JP-BoehringerIngelheim-2024-BI-027421

PATIENT
  Sex: Female

DRUGS (1)
  1. NEVIRAPINE [Suspect]
     Active Substance: NEVIRAPINE
     Indication: Product used for unknown indication

REACTIONS (4)
  - Death [Fatal]
  - Hepatic failure [Unknown]
  - General physical health deterioration [Unknown]
  - Rash [Unknown]
